FAERS Safety Report 5041343-0 (Version None)
Quarter: 2006Q2

REPORT INFORMATION
  Report Type: 
  Country: None (occurrence: None)
  Receive Date: 20060626
  Receipt Date: 20060609
  Transmission Date: 20061013
  Serious: Yes (Hospitalization)
  Sender: FDA-Public Use
  Company Number: 2006RR-02661

PATIENT
  Age: 20 Year
  Sex: Female

DRUGS (1)
  1. DOXYCYCLINE HYDROCHLORIDE (DOXYCYCLINE HYDROCHLORIDE) [Suspect]
     Indication: MALARIA PROPHYLAXIS
     Dosage: ORAL
     Route: 048

REACTIONS (3)
  - CHEST PAIN [None]
  - DYSPHAGIA [None]
  - OESOPHAGEAL ULCER [None]
